FAERS Safety Report 22320935 (Version 1)
Quarter: 2023Q2

REPORT INFORMATION
  Report Type: Report from Study
  Country: FR (occurrence: FR)
  Receive Date: 20230515
  Receipt Date: 20230515
  Transmission Date: 20230721
  Serious: Yes (Other)
  Sender: FDA-Public Use
  Company Number: FR-PFIZER INC-PV202300084719

PATIENT
  Age: 77 Year
  Sex: Male
  Weight: 79 kg

DRUGS (1)
  1. BOSULIF [Suspect]
     Active Substance: BOSUTINIB MONOHYDRATE
     Indication: Chronic myeloid leukaemia
     Dosage: 300 MG, 1X/DAY
     Dates: end: 20221020

REACTIONS (2)
  - Axonal neuropathy [Not Recovered/Not Resolved]
  - Renal artery stenosis [Not Recovered/Not Resolved]

NARRATIVE: CASE EVENT DATE: 20220101
